FAERS Safety Report 7118174-0 (Version None)
Quarter: 2010Q4

REPORT INFORMATION
  Report Type: 
  Country: None (occurrence: None)
  Receive Date: 20101123
  Receipt Date: 20101116
  Transmission Date: 20110411
  Serious: Yes (Other)
  Sender: FDA-Public Use
  Company Number: US-JNJFOC-20101105624

PATIENT
  Sex: Female
  Weight: 73.03 kg

DRUGS (12)
  1. REMICADE [Suspect]
     Indication: RHEUMATOID ARTHRITIS
     Route: 042
  2. REMICADE [Suspect]
     Route: 042
  3. METHOTREXATE [Concomitant]
     Indication: RHEUMATOID ARTHRITIS
     Dosage: DOSE: 20MG/TABLET/2.5MG8 TABLETS ONCE WEEKLY
     Route: 048
  4. ACTONEL [Concomitant]
     Indication: OSTEOARTHRITIS
     Route: 048
  5. LIPITOR [Concomitant]
     Indication: BLOOD CHOLESTEROL INCREASED
     Route: 048
  6. CRESTOR [Concomitant]
     Indication: BLOOD CHOLESTEROL INCREASED
     Route: 048
  7. NEURONTIN [Concomitant]
     Indication: MUSCLE SPASMS
     Route: 048
  8. CALCIUM [Concomitant]
     Indication: NUTRITIONAL SUPPORT
     Route: 048
  9. VITAMIN D [Concomitant]
     Indication: NUTRITIONAL SUPPORT
     Route: 048
  10. FOLIC ACID [Concomitant]
     Indication: NUTRITIONAL SUPPORT
     Route: 048
  11. VITAMIN B [Concomitant]
     Indication: NUTRITIONAL SUPPORT
     Route: 048
  12. HYOMAX [Concomitant]
     Indication: IRRITABLE BOWEL SYNDROME
     Route: 060

REACTIONS (11)
  - AKATHISIA [None]
  - BLOOD GLUCOSE DECREASED [None]
  - BLOOD URINE PRESENT [None]
  - BREAST CANCER [None]
  - CHEST DISCOMFORT [None]
  - COUGH [None]
  - ERYTHEMA [None]
  - HEART VALVE INCOMPETENCE [None]
  - HYPERTENSION [None]
  - MUSCLE TIGHTNESS [None]
  - NAUSEA [None]
